FAERS Safety Report 7304504-3 (Version None)
Quarter: 2011Q1

REPORT INFORMATION
  Report Type: 
  Country: None (occurrence: None)
  Receive Date: 20110221
  Receipt Date: 20110209
  Transmission Date: 20110831
  Serious: Yes (Life-Threatening, Other)
  Sender: FDA-Public Use
  Company Number: JP-SANOFI-AVENTIS-2011SA008629

PATIENT
  Age: 81 Year
  Sex: Male

DRUGS (10)
  1. HIRUDOID [Concomitant]
     Dates: start: 20101118, end: 20110105
  2. LENDORMIN [Concomitant]
     Dates: start: 20100801
  3. SODIUM PICOSULFATE [Concomitant]
     Dates: start: 20100801
  4. ELPLAT [Suspect]
     Route: 041
     Dates: start: 20101209, end: 20101209
  5. ELPLAT [Suspect]
     Indication: RECTAL CANCER RECURRENT
     Route: 041
     Dates: start: 20101118, end: 20101118
  6. MAGNESIUM OXIDE [Concomitant]
     Dates: start: 20100802
  7. AVASTIN [Suspect]
     Indication: RECTAL CANCER RECURRENT
     Route: 041
     Dates: start: 20101209, end: 20101209
  8. BACILLUS SUBTILIS/STREPTOCOCCUS FAECALIS [Concomitant]
     Dates: start: 20100829
  9. DEXAMETHASONE SODIUM PHOSPHATE [Concomitant]
     Dates: start: 20101119, end: 20101209
  10. XELODA [Suspect]
     Indication: RECTAL CANCER RECURRENT
     Route: 048
     Dates: start: 20101118, end: 20101223

REACTIONS (4)
  - DEPRESSED LEVEL OF CONSCIOUSNESS [None]
  - RECTAL HAEMORRHAGE [None]
  - SHOCK [None]
  - RECTAL ULCER [None]
